FAERS Safety Report 11906875 (Version 3)
Quarter: 2016Q4

REPORT INFORMATION
  Report Type: Spontaneous
  Country: IE (occurrence: IE)
  Receive Date: 20160111
  Receipt Date: 20161026
  Transmission Date: 20170206
  Serious: Yes (Other)
  Sender: FDA-Public Use
  Company Number: IE-PFIZER INC-2016003163

PATIENT
  Age: 53 Year
  Sex: Male

DRUGS (1)
  1. SUTENT [Suspect]
     Active Substance: SUNITINIB MALATE
     Indication: METASTATIC RENAL CELL CARCINOMA
     Dosage: 50 MG, 2/1 AS SCHEDULE
     Dates: start: 20151201

REACTIONS (2)
  - Dysgeusia [Not Recovered/Not Resolved]
  - Perineal abscess [Recovering/Resolving]
